FAERS Safety Report 5872493-4 (Version None)
Quarter: 2008Q3

REPORT INFORMATION
  Report Type: 
  Country: None (occurrence: None)
  Receive Date: 20080829
  Receipt Date: 20080818
  Transmission Date: 20090109
  Serious: Yes (Other)
  Sender: FDA-Public Use
  Company Number: 2008S1015056

PATIENT
  Age: 60 Year
  Sex: Female

DRUGS (3)
  1. FLUOXETINE HCL [Suspect]
     Indication: DEPRESSION
  2. AMITRIPTYLINE HYDROCHLORIDE [Suspect]
     Indication: DEPRESSION
  3. CYMBALTA [Suspect]
     Indication: DEPRESSION
     Dosage: 30 MG;DAILY;ORAL; 60 MG;DAILY;ORAL
     Route: 048

REACTIONS (2)
  - DELIRIUM [None]
  - HYPERHIDROSIS [None]
